FAERS Safety Report 10626467 (Version 1)
Quarter: 2014Q4

REPORT INFORMATION
  Report Type: Report from Study
  Country: PR (occurrence: PR)
  Receive Date: 20141204
  Receipt Date: 20141204
  Transmission Date: 20150529
  Serious: Yes (Other)
  Sender: FDA-Public Use
  Company Number: PR-BAYER-2014-175020

PATIENT
  Age: 43 Year
  Sex: Female

DRUGS (1)
  1. ADEMPAS [Suspect]
     Active Substance: RIOCIGUAT
     Indication: PULMONARY ARTERIAL HYPERTENSION
     Dosage: 1.5 MG, BID
     Route: 048
     Dates: start: 20140505

REACTIONS (2)
  - Syncope [None]
  - Hypotension [None]

NARRATIVE: CASE EVENT DATE: 20141015
